FAERS Safety Report 20471247 (Version 2)
Quarter: 2022Q1

REPORT INFORMATION
  Report Type: Spontaneous
  Country: JP (occurrence: JP)
  Receive Date: 20220214
  Receipt Date: 20220324
  Transmission Date: 20220423
  Serious: Yes (Hospitalization, Other)
  Sender: FDA-Public Use
  Company Number: JP-MSD-M2022-05061

PATIENT
  Sex: Male

DRUGS (5)
  1. KEYTRUDA [Suspect]
     Active Substance: PEMBROLIZUMAB
     Indication: Laryngeal cancer recurrent
     Dosage: 200 MILLIGRAM, Q3W
     Route: 041
     Dates: start: 20210419, end: 202112
  2. PREDONINE [Concomitant]
     Active Substance: PREDNISOLONE
     Indication: Pain
     Dosage: 20 MILLIGRAM, QD
     Route: 065
     Dates: start: 20210316, end: 20210709
  3. PREDONINE [Concomitant]
     Active Substance: PREDNISOLONE
     Indication: Epilepsy
     Dosage: 5 MILLIGRAM, QD
     Route: 065
     Dates: start: 20210710, end: 20210809
  4. PREDONINE [Concomitant]
     Active Substance: PREDNISOLONE
     Dosage: 10 MILLIGRAM, QD
     Route: 065
     Dates: start: 20210810, end: 202108
  5. OXYCONTIN [Concomitant]
     Active Substance: OXYCODONE HYDROCHLORIDE
     Dosage: UNK
     Route: 065
     Dates: start: 20210316

REACTIONS (1)
  - Immune-mediated hepatic disorder [Recovered/Resolved]

NARRATIVE: CASE EVENT DATE: 20210831
